FAERS Safety Report 9266152 (Version 1)
Quarter: 2013Q2

REPORT INFORMATION
  Report Type: Report from Study
  Country: JP (occurrence: JP)
  Receive Date: 20130502
  Receipt Date: 20130502
  Transmission Date: 20140414
  Serious: Yes (Other)
  Sender: FDA-Public Use
  Company Number: JP-ROCHE-1219441

PATIENT
  Sex: 0

DRUGS (2)
  1. RITUXIMAB [Suspect]
     Indication: B-CELL LYMPHOMA
     Route: 065
  2. INOTUZUMAB OZOGAMICIN [Suspect]
     Indication: B-CELL LYMPHOMA
     Route: 065

REACTIONS (14)
  - Neutropenia [Unknown]
  - Thrombocytopenia [Unknown]
  - Gamma-glutamyltransferase increased [Unknown]
  - Hyperbilirubinaemia [Unknown]
  - Leukopenia [Unknown]
  - Budd-Chiari syndrome [Unknown]
  - Hepatic cirrhosis [Unknown]
  - Hepatic function abnormal [Unknown]
  - Pneumonia [Unknown]
  - Blood alkaline phosphatase [Unknown]
  - Lymphopenia [Unknown]
  - Nausea [Unknown]
  - Fatigue [Unknown]
  - Aspartate aminotransferase increased [Unknown]
